FAERS Safety Report 11696087 (Version 1)
Quarter: 2015Q4

REPORT INFORMATION
  Report Type: Spontaneous
  Country: US (occurrence: US)
  Receive Date: 20151104
  Receipt Date: 20151104
  Transmission Date: 20160304
  Serious: Yes (Death)
  Sender: FDA-Public Use
  Company Number: US-ASTRAZENECA-2015SF05781

PATIENT
  Sex: Male

DRUGS (1)
  1. BYETTA [Suspect]
     Active Substance: EXENATIDE
     Route: 065
     Dates: start: 201206, end: 201211

REACTIONS (2)
  - Pancreatic carcinoma metastatic [Fatal]
  - Metastases to liver [Fatal]

NARRATIVE: CASE EVENT DATE: 20121126
